FAERS Safety Report 8596213 (Version 3)
Quarter: 2013Q3

REPORT INFORMATION
  Report Type: Spontaneous
  Country: US (occurrence: US)
  Receive Date: 20120605
  Receipt Date: 20130725
  Transmission Date: 20140515
  Serious: Yes (Disabling)
  Sender: FDA-Public Use
  Company Number: US-ASTRAZENECA-2012SE35579

PATIENT
  Sex: Female

DRUGS (11)
  1. NEXIUM [Suspect]
     Indication: GASTROOESOPHAGEAL REFLUX DISEASE
     Route: 048
  2. PROTONIX [Concomitant]
  3. ZANTAC OTC [Concomitant]
     Indication: GASTROOESOPHAGEAL REFLUX DISEASE
  4. ZANTAC OTC [Concomitant]
     Indication: DYSPEPSIA
  5. TAGAMET [Concomitant]
     Indication: GASTROOESOPHAGEAL REFLUX DISEASE
  6. TAGAMET [Concomitant]
     Indication: DYSPEPSIA
  7. TUMS [Concomitant]
  8. GAVISCON [Concomitant]
  9. MYLANTA [Concomitant]
  10. ROLAIDS [Concomitant]
  11. PREMARIN [Concomitant]

REACTIONS (7)
  - Fall [Unknown]
  - Concussion [Unknown]
  - Osteoporosis [Unknown]
  - Multiple fractures [Unknown]
  - Foot fracture [Unknown]
  - Angina pectoris [Unknown]
  - Diabetes mellitus [Unknown]
